FAERS Safety Report 24558312 (Version 1)
Quarter: 2024Q4

REPORT INFORMATION
  Report Type: Spontaneous
  Country: US (occurrence: US)
  Receive Date: 20241029
  Receipt Date: 20241029
  Transmission Date: 20250115
  Serious: No
  Sender: ENDO
  Company Number: ENDB24-00376

PATIENT
  Sex: Male

DRUGS (9)
  1. VALSTAR [Suspect]
     Active Substance: VALRUBICIN
     Indication: Bladder cancer
     Dosage: UNK UNKNOWN, UNKNOWN (TREATMENT ONE, STARTED A MONTH AGO)
     Route: 065
     Dates: start: 20240109
  2. VALSTAR [Suspect]
     Active Substance: VALRUBICIN
     Indication: Bladder cancer
     Dosage: UNK UNKNOWN, UNKNOWN (TREATMENT ONE, STARTED A MONTH AGO)
     Route: 065
     Dates: start: 20240109
  3. VALSTAR [Suspect]
     Active Substance: VALRUBICIN
     Dosage: UNK UNKNOWN, UNKNOWN (TREATMENT TWO)
     Route: 065
     Dates: start: 2024
  4. VALSTAR [Suspect]
     Active Substance: VALRUBICIN
     Dosage: UNK UNKNOWN, UNKNOWN (TREATMENT TWO)
     Route: 065
     Dates: start: 2024
  5. VALSTAR [Suspect]
     Active Substance: VALRUBICIN
     Dosage: UNK UNKNOWN, UNKNOWN (TREATMENT THREE)
     Route: 065
     Dates: start: 2024
  6. VALSTAR [Suspect]
     Active Substance: VALRUBICIN
     Dosage: UNK UNKNOWN, UNKNOWN (TREATMENT THREE)
     Route: 065
     Dates: start: 2024
  7. VALSTAR [Suspect]
     Active Substance: VALRUBICIN
     Dosage: UNK UNKNOWN, UNKNOWN (TREATMENT FOUR)
     Route: 065
     Dates: start: 2024
  8. VALSTAR [Suspect]
     Active Substance: VALRUBICIN
     Dosage: UNK UNKNOWN, UNKNOWN (TREATMENT FOUR)
     Route: 065
     Dates: start: 2024
  9. MOUNJARO [Concomitant]
     Active Substance: TIRZEPATIDE
     Indication: Type 2 diabetes mellitus
     Dosage: UNK UNKNOWN, UNKNOWN (ONE YEAR AGO)
     Route: 065
     Dates: start: 2023

REACTIONS (1)
  - Blood glucose increased [Unknown]

NARRATIVE: CASE EVENT DATE: 20240101
